FAERS Safety Report 9858125 (Version 1)
Quarter: 2014Q1

REPORT INFORMATION
  Report Type: Spontaneous
  Country: GB (occurrence: GB)
  Receive Date: 20140131
  Receipt Date: 20140131
  Transmission Date: 20141002
  Serious: Yes (Other)
  Sender: FDA-Public Use
  Company Number: GB-TEVA-457522ISR

PATIENT
  Age: 42 Year
  Sex: Female
  Weight: 87.99 kg

DRUGS (12)
  1. PREDNISOLONE [Suspect]
     Indication: PNEUMONIA
     Dosage: 40 MILLIGRAM DAILY; STARTING DOSE 8 X 5MG DAILY THEN GRADUALLY REDUCING
     Route: 048
     Dates: start: 20131116
  2. HUMULIN [Concomitant]
  3. METFORMIN [Concomitant]
  4. VENLAFAXINE [Concomitant]
  5. FOSTAIR [Concomitant]
     Route: 055
  6. CETIRIZINE [Concomitant]
  7. SIMVASTATIN [Concomitant]
  8. RAMIPRIL [Concomitant]
  9. MIRTAZAPINE [Concomitant]
  10. QUETIAPINE [Concomitant]
  11. OMEPRAZOLE [Concomitant]
  12. DOXYCYCLINE [Concomitant]

REACTIONS (5)
  - Hallucination [Recovered/Resolved]
  - Hyperhidrosis [Recovered/Resolved]
  - Dysgeusia [Recovered/Resolved]
  - Blood glucose increased [Recovered/Resolved]
  - Increased appetite [Recovered/Resolved]
